FAERS Safety Report 7287673-3 (Version None)
Quarter: 2011Q1

REPORT INFORMATION
  Report Type: 
  Country: None (occurrence: None)
  Receive Date: 20110211
  Receipt Date: 20110201
  Transmission Date: 20110831
  Serious: Yes (Other)
  Sender: FDA-Public Use
  Company Number: US-ELI_LILLY_AND_COMPANY-US200912004403

PATIENT
  Sex: Female

DRUGS (11)
  1. LUNESTA [Concomitant]
  2. HYDROCODONE [Concomitant]
  3. METOPROLOL [Concomitant]
  4. HYDROCHLOROTHIAZDE TAB [Concomitant]
  5. VESICARE [Concomitant]
  6. FORTEO [Suspect]
     Indication: OSTEOPOROSIS
     Dosage: 20 UG, DAILY (1/D)
  7. LISINOPRIL [Concomitant]
  8. ZOLOFT [Concomitant]
  9. TEMAZEPAM [Concomitant]
  10. FORTEO [Suspect]
     Dosage: 20 UG, DAILY (1/D)
  11. LYRICA [Concomitant]

REACTIONS (14)
  - BALANCE DISORDER [None]
  - MEMORY IMPAIRMENT [None]
  - POLLAKIURIA [None]
  - ARTHRALGIA [None]
  - CATARACT OPERATION [None]
  - CEREBROVASCULAR ACCIDENT [None]
  - PERIPHERAL NERVE OPERATION [None]
  - ERYTHEMA [None]
  - RIB FRACTURE [None]
  - MUSCULOSKELETAL CHEST PAIN [None]
  - FALL [None]
  - JAW DISORDER [None]
  - HAND FRACTURE [None]
  - GAIT DISTURBANCE [None]
